FAERS Safety Report 10233112 (Version 2)
Quarter: 2014Q2

REPORT INFORMATION
  Report Type: Report from Study
  Country: BR (occurrence: BR)
  Receive Date: 20140612
  Receipt Date: 20140624
  Transmission Date: 20141212
  Serious: Yes (Hospitalization)
  Sender: FDA-Public Use
  Company Number: BR-SA-2014SA074301

PATIENT
  Age: 26 Year
  Sex: Male
  Weight: 81.7 kg

DRUGS (5)
  1. ALEMTUZUMAB [Suspect]
     Indication: MULTIPLE SCLEROSIS
     Route: 042
     Dates: start: 20110523, end: 20110527
  2. ALEMTUZUMAB [Suspect]
     Indication: MULTIPLE SCLEROSIS
     Route: 042
     Dates: start: 20120521, end: 20120523
  3. REBIF [Concomitant]
  4. IBUPROFEN [Concomitant]
  5. ANALGESICS [Concomitant]

REACTIONS (1)
  - Osteonecrosis [Recovered/Resolved]
